FAERS Safety Report 20692949 (Version 1)
Quarter: 2022Q2

REPORT INFORMATION
  Report Type: Spontaneous
  Country: US (occurrence: US)
  Receive Date: 20220410
  Receipt Date: 20220410
  Transmission Date: 20220721
  Serious: No
  Sender: FDA-Public Use
  Company Number: US-AMGEN-USASP2022056684

PATIENT
  Age: 51 Year
  Sex: Male
  Weight: 32.48 kg

DRUGS (1)
  1. MVASI [Suspect]
     Active Substance: BEVACIZUMAB-AWWB
     Indication: Brain neoplasm
     Dosage: 750 MILLIGRAM
     Route: 065
     Dates: start: 20211008

REACTIONS (2)
  - Visual impairment [Unknown]
  - Ocular hyperaemia [Unknown]
